FAERS Safety Report 23371279 (Version 1)
Quarter: 2024Q1

REPORT INFORMATION
  Report Type: Spontaneous
  Country: US (occurrence: US)
  Receive Date: 20240105
  Receipt Date: 20240105
  Transmission Date: 20240410
  Serious: Yes (Hospitalization, Other)
  Sender: FDA-Public Use
  Company Number: US-IPSEN Group, Research and Development-2024-00124

PATIENT
  Age: 73 Year
  Sex: Male
  Weight: 88.3 kg

DRUGS (12)
  1. ONIVYDE [Suspect]
     Active Substance: IRINOTECAN HYDROCHLORIDE
     Indication: Colorectal cancer
     Dosage: 282.6 MILLIGRAM/SQ. METER, DAY 1, Q14D
     Route: 042
     Dates: start: 20231208, end: 20231208
  2. ONIVYDE [Suspect]
     Active Substance: IRINOTECAN HYDROCHLORIDE
     Indication: Off label use
  3. SIREXATAMAB [Suspect]
     Active Substance: SIREXATAMAB
     Indication: Colorectal cancer
     Dosage: 400 MILLIGRAM, Q 14 DAYS
     Route: 042
     Dates: start: 20231208, end: 20231208
  4. LEUCOVORIN [Suspect]
     Active Substance: LEUCOVORIN\LEUCOVORIN CALCIUM
     Indication: Colorectal cancer
     Dosage: 628 MILLIGRAM/SQ. METER, DAY 1, Q14D
     Route: 042
     Dates: start: 20231208, end: 20231208
  5. FLUOROURACIL [Suspect]
     Active Substance: FLUOROURACIL
     Indication: Colorectal cancer
     Dosage: 4396 MILLIGRAM, DAY 1, Q14D
     Route: 042
     Dates: start: 20231208, end: 20231208
  6. BEVACIZUMAB [Suspect]
     Active Substance: BEVACIZUMAB
     Indication: Colorectal cancer
     Dosage: 269 MILLIGRAM/KILOGRAM, DAY 1, Q14D
     Route: 042
     Dates: start: 20231208, end: 20231208
  7. AMBROXOL ACEFYLLINATE [Concomitant]
     Active Substance: AMBROXOL ACEFYLLINATE
  8. LEVOCLOPERASTINE FENDIZOATE [Concomitant]
     Active Substance: LEVOCLOPERASTINE FENDIZOATE
  9. MEGESTROL ACETATE [Concomitant]
     Active Substance: MEGESTROL ACETATE
  10. LACTITOL [Concomitant]
     Active Substance: LACTITOL
  11. PREGABALIN [Concomitant]
     Active Substance: PREGABALIN
  12. CARBOHYDRATES\FATTY ACIDS\MINERALS\PROTEIN\VITAMINS [Concomitant]
     Active Substance: CARBOHYDRATES\FATTY ACIDS\MINERALS\PROTEIN\VITAMINS

REACTIONS (8)
  - Sepsis [Not Recovered/Not Resolved]
  - Neutropenia [Not Recovered/Not Resolved]
  - Lung consolidation [Not Recovered/Not Resolved]
  - Hypotension [Not Recovered/Not Resolved]
  - Acute kidney injury [Not Recovered/Not Resolved]
  - Pneumonia [Not Recovered/Not Resolved]
  - Asthenia [Not Recovered/Not Resolved]
  - Off label use [Unknown]

NARRATIVE: CASE EVENT DATE: 20231213
